FAERS Safety Report 23610135 (Version 1)
Quarter: 2024Q1

REPORT INFORMATION
  Report Type: Spontaneous
  Country: US (occurrence: US)
  Receive Date: 20240308
  Receipt Date: 20240308
  Transmission Date: 20240409
  Serious: Yes (Hospitalization, Other)
  Sender: FDA-Public Use
  Company Number: US-SUN PHARMACEUTICAL INDUSTRIES LTD-2024R1-434990

PATIENT
  Age: 36 Year
  Sex: Female

DRUGS (1)
  1. VALACYCLOVIR HYDROCHLORIDE [Suspect]
     Active Substance: VALACYCLOVIR HYDROCHLORIDE
     Indication: Infection
     Dosage: UNK
     Route: 065

REACTIONS (6)
  - Therapeutic response decreased [Unknown]
  - Vulvovaginal candidiasis [Unknown]
  - Oral candidiasis [Unknown]
  - Rash erythematous [Unknown]
  - Lupus nephritis [Unknown]
  - Systemic lupus erythematosus [Unknown]
